FAERS Safety Report 5899000-4 (Version None)
Quarter: 2008Q3

REPORT INFORMATION
  Report Type: 
  Country: None (occurrence: None)
  Receive Date: 20080925
  Receipt Date: 20080916
  Transmission Date: 20090109
  Serious: Yes (Hospitalization)
  Sender: FDA-Public Use
  Company Number: DE-ASTRAZENECA-2008PK02056

PATIENT
  Age: 69 Year
  Sex: Female

DRUGS (2)
  1. SEROQUEL PROLONG [Suspect]
     Route: 048
  2. GLIANIMON [Concomitant]
     Route: 048

REACTIONS (2)
  - HAEMATEMESIS [None]
  - HEPATIC ENZYME INCREASED [None]
